FAERS Safety Report 6128804-8 (Version None)
Quarter: 2009Q1

REPORT INFORMATION
  Report Type: 
  Country: None (occurrence: None)
  Receive Date: 20090320
  Receipt Date: 20090306
  Transmission Date: 20090719
  Serious: Yes (Other)
  Sender: FDA-Public Use
  Company Number: PH-1168394

PATIENT
  Sex: Female

DRUGS (3)
  1. SYSTANE (SYSTANE EYE DROPS) EYE DROPS [Suspect]
     Dosage: (4 TIMES A DAY AND AS NEEDED FOR DRYNESS OPHTHALMIC)
     Route: 047
     Dates: start: 20081114, end: 20081117
  2. GATIFLOXACIN [Concomitant]
  3. PREDNISOLONE ACETATE [Concomitant]

REACTIONS (1)
  - KERATITIS [None]
